FAERS Safety Report 4966636-4 (Version None)
Quarter: 2006Q2

REPORT INFORMATION
  Report Type: 
  Country: None (occurrence: None)
  Receive Date: 20060407
  Receipt Date: 20051024
  Transmission Date: 20061013
  Serious: Yes (Life-Threatening, Other)
  Sender: FDA-Public Use
  Company Number: NL-AVENTIS-200519843GDDC

PATIENT
  Age: 68 Year
  Sex: Male

DRUGS (5)
  1. TAXOTERE [Suspect]
     Indication: PROSTATE CANCER
     Dosage: DOSE: 140 MG
     Route: 042
     Dates: start: 20050414, end: 20050930
  2. PREDNISONE [Concomitant]
     Indication: PROSTATE CANCER
     Dosage: DOSE: 5 MG
     Route: 048
  3. OXYCONTIN [Concomitant]
     Indication: PAIN
     Dosage: DOSE: 20 MG
     Route: 048
  4. IBUPROFEN [Concomitant]
     Indication: PAIN
     Dosage: DOSE: 600 1 TO 4 TIMES A DAY
     Route: 048
  5. ZOMETA [Concomitant]
     Indication: METASTASES TO BONE
     Dosage: DOSE: 4 MG
     Route: 042

REACTIONS (3)
  - ANURIA [None]
  - HAEMODIALYSIS [None]
  - RENAL FAILURE [None]
